FAERS Safety Report 5125676-5 (Version None)
Quarter: 2006Q4

REPORT INFORMATION
  Report Type: 
  Country: None (occurrence: None)
  Receive Date: 20061006
  Receipt Date: 20061002
  Transmission Date: 20070319
  Serious: Yes (Other)
  Sender: FDA-Public Use
  Company Number: SPV1-2006-00959

PATIENT

DRUGS (1)
  1. PROAMATINE [Suspect]
     Dosage: ORAL
     Route: 048

REACTIONS (1)
  - ATRIAL FIBRILLATION [None]
